FAERS Safety Report 23868064 (Version 2)
Quarter: 2024Q4

REPORT INFORMATION
  Report Type: Spontaneous
  Country: CN (occurrence: CN)
  Receive Date: 20240517
  Receipt Date: 20241226
  Transmission Date: 20250115
  Serious: Yes (Hospitalization)
  Sender: DR REDDYS
  Company Number: CN-RDY-LIT/CHN/24/0007096

PATIENT
  Age: 72 Year
  Sex: Male

DRUGS (15)
  1. PREGABALIN [Suspect]
     Active Substance: PREGABALIN
     Indication: Post herpetic neuralgia
  2. PREGABALIN [Suspect]
     Active Substance: PREGABALIN
     Dosage: 150 MG, EVERY 12 HOURS
  3. EBASTINE [Concomitant]
     Active Substance: EBASTINE
     Indication: Antiallergic therapy
  4. ACYCLOVIR [Concomitant]
     Active Substance: ACYCLOVIR
     Indication: Herpes zoster
     Dosage: 0.5 G EVERY 8 HOURS)
  5. ACYCLOVIR [Concomitant]
     Active Substance: ACYCLOVIR
     Dosage: EVERY 6 HRS
  6. CODEINE PHOSPHATE [Concomitant]
     Active Substance: CODEINE PHOSPHATE
     Indication: Post herpetic neuralgia
     Dosage: 0.2 G/12.5 MG, EVERY 6 HOURS
  7. OXYCODONE AND ACETAMINOPHEN [Concomitant]
     Active Substance: ACETAMINOPHEN\OXYCODONE HYDROCHLORIDE
     Indication: Post herpetic neuralgia
     Dosage: 5 MG/325 MG, EVERY 6 HOURS
  8. OXYCODONE HYDROCHLORIDE [Concomitant]
     Active Substance: OXYCODONE HYDROCHLORIDE
     Indication: Post herpetic neuralgia
     Dosage: 10 MG, EVERY 12 HOURS
  9. MORPHINE HYDROCHLORIDE [Concomitant]
     Active Substance: MORPHINE HYDROCHLORIDE
     Indication: Post herpetic neuralgia
     Dosage: 5 MG, AS NEEDED
  10. DICLOFENAC SODIUM [Concomitant]
     Active Substance: DICLOFENAC SODIUM
     Indication: Post herpetic neuralgia
     Dosage: (75 MG, ONCE DAILY)
  11. ROPIVACAINE [Concomitant]
     Active Substance: ROPIVACAINE
     Indication: Post herpetic neuralgia
     Dosage: 2.5 ML OF 0.2%
  12. DIPROSPAN [Concomitant]
     Active Substance: BETAMETHASONE DIPROPIONATE\BETAMETHASONE SODIUM PHOSPHATE
     Indication: Post herpetic neuralgia
     Dosage: 7 MG/ML
  13. GLIQUIDONE [Concomitant]
     Active Substance: GLIQUIDONE
     Indication: Diabetes mellitus
     Dosage: 30 MG, EVERY 8 HOURS
  14. INSULIN GLARGINE [Concomitant]
     Active Substance: INSULIN GLARGINE
     Indication: Diabetes mellitus
  15. INSULIN GLULISINE [Concomitant]
     Active Substance: INSULIN GLULISINE
     Indication: Diabetes mellitus

REACTIONS (4)
  - Type IV hypersensitivity reaction [Unknown]
  - Rash maculo-papular [Unknown]
  - Drug ineffective [Unknown]
  - Pain [Unknown]
